FAERS Safety Report 6418371-3 (Version None)
Quarter: 2009Q4

REPORT INFORMATION
  Report Type: 
  Country: None (occurrence: None)
  Receive Date: 20091021
  Receipt Date: 20090626
  Transmission Date: 20100525
  Serious: No
  Sender: FDA-Public Use
  Company Number: ALL1-2009-01760

PATIENT
  Age: 8 Year
  Sex: Female
  Weight: 27.2 kg

DRUGS (1)
  1. VYVANSE [Suspect]
     Indication: ATTENTION DEFICIT/HYPERACTIVITY DISORDER
     Dosage: 30 MG, 1X/DAY:QD, ORAL
     Route: 048
     Dates: start: 20090625, end: 20090626

REACTIONS (7)
  - BRADYPHRENIA [None]
  - CRYING [None]
  - DECREASED APPETITE [None]
  - DRUG EFFECT INCREASED [None]
  - EUPHORIC MOOD [None]
  - INITIAL INSOMNIA [None]
  - LOGORRHOEA [None]
